FAERS Safety Report 9050986 (Version 2)
Quarter: 2013Q2

REPORT INFORMATION
  Report Type: Spontaneous
  Country: FR (occurrence: FR)
  Receive Date: 20130205
  Receipt Date: 20130516
  Transmission Date: 20140414
  Serious: Yes (Hospitalization)
  Sender: FDA-Public Use
  Company Number: FR-PFIZER INC-2013042310

PATIENT
  Age: 28 Year
  Sex: Female

DRUGS (3)
  1. SALAZOPYRINE [Suspect]
     Indication: ENTEROCOLITIS HAEMORRHAGIC
     Dosage: UNK
     Route: 048
     Dates: start: 20121102, end: 20121115
  2. PENTASA ^FERRING^ [Suspect]
     Indication: ENTEROCOLITIS HAEMORRHAGIC
     Dosage: UNK
     Route: 054
     Dates: start: 20121102, end: 20121115
  3. IMUREL [Suspect]
     Indication: ENTEROCOLITIS HAEMORRHAGIC
     Dosage: UNK
     Route: 048
     Dates: start: 20120618

REACTIONS (6)
  - Rash maculo-papular [Recovered/Resolved]
  - Face oedema [Recovered/Resolved]
  - Pyrexia [Recovered/Resolved]
  - Anaemia [Recovered/Resolved]
  - Leukopenia [Recovered/Resolved]
  - Transaminases increased [Recovered/Resolved]
